FAERS Safety Report 8516914-7 (Version None)
Quarter: 2012Q2

REPORT INFORMATION
  Report Type: 
  Country: None (occurrence: None)
  Receive Date: 20120406
  Receipt Date: 20100209
  Transmission Date: 20120825
  Serious: Yes (Hospitalization)
  Sender: FDA-Public Use
  Company Number: PHHY2010US01092

PATIENT
  Age: 52 Year
  Sex: Female

DRUGS (2)
  1. TASIGNA [Suspect]
     Indication: CHRONIC MYELOID LEUKAEMIA
     Dosage: 400 MG, BID, ORAL
     Route: 048
  2. LEVOTHYROXINE SODIUM [Concomitant]

REACTIONS (4)
  - CARDIAC FAILURE CONGESTIVE [None]
  - CHEST PAIN [None]
  - DYSPNOEA [None]
  - ARTHRALGIA [None]
